FAERS Safety Report 7868349-8 (Version None)
Quarter: 2011Q4

REPORT INFORMATION
  Report Type: 
  Country: None (occurrence: None)
  Receive Date: 20111028
  Receipt Date: 20101213
  Transmission Date: 20120403
  Serious: Yes (Other)
  Sender: FDA-Public Use
  Company Number: US-AMGEN-USASP2010009134

PATIENT
  Age: 4 Year
  Sex: Female

DRUGS (2)
  1. ENBREL [Suspect]
     Dates: start: 20101123
  2. METHOTREXATE [Concomitant]
     Dates: start: 20101001

REACTIONS (4)
  - HEPATIC ENZYME INCREASED [None]
  - RHINORRHOEA [None]
  - COUGH [None]
  - PALLOR [None]
